FAERS Safety Report 8232797-7 (Version None)
Quarter: 2012Q1

REPORT INFORMATION
  Report Type: 
  Country: None (occurrence: None)
  Receive Date: 20120323
  Receipt Date: 20111227
  Transmission Date: 20120608
  Serious: No
  Sender: FDA-Public Use
  Company Number: US-AMGEN-USASP2011058067

PATIENT
  Age: 66 Year
  Sex: Male

DRUGS (3)
  1. CLONAZEPAM [Concomitant]
  2. ENBREL [Suspect]
     Indication: PSORIASIS
     Dosage: 50 MG, QWK
     Route: 058
     Dates: start: 20090219
  3. NAFTIN [Concomitant]

REACTIONS (1)
  - BONE PAIN [None]
